FAERS Safety Report 23725672 (Version 1)
Quarter: 2024Q2

REPORT INFORMATION
  Report Type: Spontaneous
  Country: CN (occurrence: CN)
  Receive Date: 20240410
  Receipt Date: 20240410
  Transmission Date: 20240716
  Serious: Yes (Other)
  Sender: FDA-Public Use
  Company Number: CN-JNJFOC-20240420333

PATIENT

DRUGS (1)
  1. DARZALEX [Suspect]
     Active Substance: DARATUMUMAB
     Indication: Product used for unknown indication
     Dosage: 400 MG/20ML/VIAL, QUANTITY 2
     Route: 065

REACTIONS (3)
  - Haemolysis [Unknown]
  - Temperature intolerance [Unknown]
  - Pyrexia [Unknown]
